FAERS Safety Report 11392182 (Version 1)
Quarter: 2015Q3

REPORT INFORMATION
  Report Type: Spontaneous
  Country: DE (occurrence: None)
  Receive Date: 20150814
  Receipt Date: 20150814
  Transmission Date: 20151125
  Serious: Yes (Other)
  Sender: FDA-Public Use
  Company Number: 2015RR-101429

PATIENT
  Age: 1 Day
  Sex: Female
  Weight: 2.5 kg

DRUGS (6)
  1. TAVOR [Suspect]
     Active Substance: LORAZEPAM
     Indication: DEPRESSION
     Dosage: PROBABLY LONGER, DOSAGE BETWEEN 1 AND 0.5MG/DAY, DURING GW 0-32.6
     Route: 064
  2. ATOSIL [Suspect]
     Active Substance: PROMETHAZINE HYDROCHLORIDE
     Indication: DEPRESSION
     Dosage: 2ND + 3RD TRIMESTER
     Route: 064
  3. SEROQUEL [Suspect]
     Active Substance: QUETIAPINE FUMARATE
     Indication: DEPRESSION
     Dosage: DRUING GW 0-17.3
     Route: 064
     Dates: start: 20140406, end: 20140806
  4. TRUXAL [Suspect]
     Active Substance: CHLORPROTHIXENE
     Indication: DEPRESSION
     Dosage: PROBABLY LONGER, IF REQUIRED, DURING GESTATIONAL WEEK 0-16.6
     Route: 064
     Dates: start: 20140406, end: 20140802
  5. CITALOPRAM [Suspect]
     Active Substance: CITALOPRAM HYDROBROMIDE
     Indication: DEPRESSION
     Dosage: PROBABLY LONGER, DURING GW 0-17.1
     Route: 064
     Dates: start: 20140406, end: 20140804
  6. VENLAFAXINE [Suspect]
     Active Substance: VENLAFAXINE HYDROCHLORIDE
     Indication: DEPRESSION
     Dosage: PROBABLY LONGER, DURING THE 1ST TRIMESTER
     Route: 064
     Dates: start: 20140406, end: 20140806

REACTIONS (4)
  - Respiratory disorder neonatal [None]
  - Maternal drugs affecting foetus [None]
  - Floppy infant [None]
  - Hypotonia neonatal [None]

NARRATIVE: CASE EVENT DATE: 20141122
